FAERS Safety Report 4615495-8 (Version None)
Quarter: 2005Q2

REPORT INFORMATION
  Report Type: 
  Country: None (occurrence: None)
  Receive Date: 20050311
  Receipt Date: 20050105
  Transmission Date: 20051028
  Serious: No
  Sender: FDA-Public Use
  Company Number: 2005-BP-00173BP

PATIENT
  Age: 68 Year
  Sex: Female

DRUGS (17)
  1. SPIRIVA [Suspect]
     Indication: ASTHMA
     Dosage: 1 CAP QD (18 MCG, 18 IN 1 D), IH
     Route: 055
     Dates: start: 20040701
  2. SPIRIVA [Suspect]
     Indication: CHRONIC OBSTRUCTIVE PULMONARY DISEASE
     Dosage: 18 MCG (18 MCG), PO
     Route: 048
  3. ZELNORM [Concomitant]
  4. ADVAIR DISKUS 100/50 [Concomitant]
  5. PREDNISONE [Concomitant]
  6. LISINOPRIL [Concomitant]
  7. ACCOLATE [Concomitant]
  8. LACTULOSE [Concomitant]
  9. SENNOKOT (SENNA ALEXANDRINA FRUIT) [Concomitant]
  10. DURAGESIC-100 [Concomitant]
  11. PREVACID [Concomitant]
  12. XANAX [Concomitant]
  13. ZYRTEC [Concomitant]
  14. HUMIBID (GUAIFENESIN) [Concomitant]
  15. ZOLOFT [Concomitant]
  16. CITRUCEL (METHYLCELLULOSE) [Concomitant]
  17. REQUIP [Concomitant]

REACTIONS (4)
  - ACCIDENTAL EXPOSURE [None]
  - CONSTIPATION [None]
  - FLATULENCE [None]
  - VOMITING [None]
